FAERS Safety Report 12829393 (Version 1)
Quarter: 2016Q4

REPORT INFORMATION
  Report Type: Spontaneous
  Country: US (occurrence: US)
  Receive Date: 20161007
  Receipt Date: 20161007
  Transmission Date: 20170207
  Serious: No
  Sender: FDA-Public Use
  Company Number: US-SA-2016SA053026

PATIENT
  Age: 65 Year
  Sex: Female

DRUGS (10)
  1. CLOBETASOL PROPIONATE. [Concomitant]
     Active Substance: CLOBETASOL PROPIONATE
  2. LYRICA [Concomitant]
     Active Substance: PREGABALIN
  3. PROLIA [Concomitant]
     Active Substance: DENOSUMAB
  4. ESTRACE [Concomitant]
     Active Substance: ESTRADIOL
  5. CALCIUM PLUS VITAMIN D3 [Concomitant]
  6. TYLENOL [Concomitant]
     Active Substance: ACETAMINOPHEN
  7. PROTONIX [Concomitant]
     Active Substance: PANTOPRAZOLE SODIUM
  8. SYNTHROID [Concomitant]
     Active Substance: LEVOTHYROXINE SODIUM
  9. LUTEIN [Concomitant]
     Active Substance: LUTEIN
  10. AUBAGIO [Suspect]
     Active Substance: TERIFLUNOMIDE
     Indication: MULTIPLE SCLEROSIS
     Route: 048

REACTIONS (3)
  - Discomfort [Unknown]
  - Paraesthesia [Unknown]
  - Dizziness [Unknown]
